FAERS Safety Report 20839774 (Version 1)
Quarter: 2022Q2

REPORT INFORMATION
  Report Type: Spontaneous
  Country: US (occurrence: US)
  Receive Date: 20220517
  Receipt Date: 20220517
  Transmission Date: 20220721
  Serious: Yes (Hospitalization, Other)
  Sender: FDA-Public Use
  Company Number: US-BRISTOL-MYERS SQUIBB COMPANY-2022-034843

PATIENT
  Age: 71 Year
  Sex: Male
  Weight: 79.3 kg

DRUGS (1)
  1. REVLIMID [Suspect]
     Active Substance: LENALIDOMIDE
     Indication: Plasmacytoma
     Dosage: 2W, 1W OFF
     Route: 048
     Dates: start: 20220401

REACTIONS (4)
  - Intestinal obstruction [Unknown]
  - Pulmonary thrombosis [Unknown]
  - Oesophagitis [Unknown]
  - Off label use [Unknown]
